FAERS Safety Report 13841533 (Version 3)
Quarter: 2017Q4

REPORT INFORMATION
  Report Type: Spontaneous
  Country: US (occurrence: US)
  Receive Date: 20170807
  Receipt Date: 20171002
  Transmission Date: 20180320
  Serious: Yes (Other)
  Sender: FDA-Public Use
  Company Number: US-PFIZER INC-2017341115

PATIENT
  Age: 41 Year
  Sex: Female
  Weight: 140.6 kg

DRUGS (2)
  1. ARMOUR THYROID [Concomitant]
     Active Substance: THYROID, PORCINE
     Dosage: UNK
     Dates: start: 201412, end: 201612
  2. EFFEXOR XR [Suspect]
     Active Substance: VENLAFAXINE HYDROCHLORIDE
     Dosage: 150 MG, UNK

REACTIONS (5)
  - Cartilage injury [Recovered/Resolved]
  - Meniscus injury [Recovered/Resolved]
  - Feeling abnormal [Unknown]
  - Withdrawal syndrome [Unknown]
  - Paraesthesia [Unknown]

NARRATIVE: CASE EVENT DATE: 2007
